FAERS Safety Report 8947277 (Version 8)
Quarter: 2013Q2

REPORT INFORMATION
  Report Type: Report from Study
  Country: KR (occurrence: KR)
  Receive Date: 20121205
  Receipt Date: 20130426
  Transmission Date: 20140414
  Serious: Yes (Hospitalization)
  Sender: FDA-Public Use
  Company Number: KR-GLAXOSMITHKLINE-B0848500A

PATIENT
  Age: 31 Year
  Sex: Female
  Weight: 58.7 kg

DRUGS (3)
  1. GSK1550188 [Suspect]
     Indication: SYSTEMIC LUPUS ERYTHEMATOSUS
     Route: 042
     Dates: start: 20110831
  2. AMPICILLIN [Concomitant]
     Indication: TONSILLITIS BACTERIAL
     Dosage: 1G FOUR TIMES PER DAY
     Route: 042
     Dates: start: 20121126, end: 20121205
  3. SULBACTAM [Concomitant]
     Indication: TONSILLITIS BACTERIAL
     Dosage: 1G FOUR TIMES PER DAY
     Route: 042
     Dates: start: 20121126, end: 20121205

REACTIONS (3)
  - Herpes simplex [Recovered/Resolved]
  - Herpes simplex [Recovered/Resolved]
  - Herpes simplex [Recovered/Resolved]
